FAERS Safety Report 4740686-5 (Version None)
Quarter: 2005Q3

REPORT INFORMATION
  Report Type: 
  Country: None (occurrence: None)
  Receive Date: 20050810
  Receipt Date: 20050505
  Transmission Date: 20060218
  Serious: Yes (Other)
  Sender: FDA-Public Use
  Company Number: MY0504

PATIENT
  Sex: Female

DRUGS (5)
  1. LOTRONEX [Suspect]
     Indication: IRRITABLE BOWEL SYNDROME
  2. SYNTHROID [Concomitant]
     Route: 048
  3. UNKNOWN MEDICATION [Concomitant]
  4. INDERAL [Concomitant]
  5. ZOLOFT [Concomitant]

REACTIONS (2)
  - COLITIS [None]
  - DRUG INEFFECTIVE [None]
